FAERS Safety Report 17871101 (Version 2)
Quarter: 2020Q2

REPORT INFORMATION
  Report Type: Spontaneous
  Country: US (occurrence: US)
  Receive Date: 20200608
  Receipt Date: 20200610
  Transmission Date: 20200714
  Serious: Yes (Hospitalization, Other)
  Sender: FDA-Public Use
  Company Number: US-PFIZER INC-2020221612

PATIENT
  Age: 71 Year
  Sex: Female
  Weight: 61.23 kg

DRUGS (1)
  1. VFEND [Suspect]
     Active Substance: VORICONAZOLE
     Indication: PULMONARY MYCOSIS
     Dosage: UNK, 1X/DAY

REACTIONS (10)
  - Vision blurred [Unknown]
  - Gait disturbance [Unknown]
  - Myelodysplastic syndrome [Unknown]
  - Platelet count decreased [Unknown]
  - Pain [Unknown]
  - White blood cell count decreased [Unknown]
  - Road traffic accident [Unknown]
  - Chronic lymphocytic leukaemia [Unknown]
  - Off label use [Unknown]
  - Red blood cell count decreased [Unknown]
